FAERS Safety Report 11322320 (Version 1)
Quarter: 2015Q3

REPORT INFORMATION
  Report Type: Spontaneous
  Country: IT (occurrence: None)
  Receive Date: 20150728
  Receipt Date: 20150728
  Transmission Date: 20151125
  Serious: Yes (Other)
  Sender: FDA-Public Use
  Company Number: NSR_02181_2015

PATIENT
  Age: 36 Year
  Sex: Male

DRUGS (2)
  1. DIAZEPAM  (DIAZEPAM) [Suspect]
     Active Substance: DIAZEPAM
     Indication: ALCOHOLISM
     Dosage: DF
  2. BACLOFEN (BACLOFEN) [Suspect]
     Active Substance: BACLOFEN
     Indication: ALCOHOLISM
     Dosage: DF

REACTIONS (5)
  - Lethargy [None]
  - No therapeutic response [None]
  - Toxicity to various agents [None]
  - Stupor [None]
  - Drug abuse [None]
